FAERS Safety Report 14419008 (Version 2)
Quarter: 2018Q1

REPORT INFORMATION
  Report Type: Spontaneous
  Country: US (occurrence: US)
  Receive Date: 20180122
  Receipt Date: 20180305
  Transmission Date: 20180509
  Serious: Yes (Other)
  Sender: FDA-Public Use
  Company Number: US-SA-2018SA013001

PATIENT
  Sex: Female
  Weight: 62.14 kg

DRUGS (2)
  1. ALLEGRA-D 24 HOUR [Suspect]
     Active Substance: FEXOFENADINE HYDROCHLORIDE\PSEUDOEPHEDRINE HYDROCHLORIDE
     Indication: SEASONAL ALLERGY
     Route: 048
  2. LORATADINE. [Concomitant]
     Active Substance: LORATADINE
     Indication: HYPERSENSITIVITY
     Route: 065
     Dates: start: 201710, end: 20180109

REACTIONS (6)
  - Tremor [Recovered/Resolved]
  - Heart rate increased [Recovered/Resolved]
  - Delirium [Recovered/Resolved]
  - Feeling jittery [Recovered/Resolved]
  - Insomnia [Recovered/Resolved]
  - Nervousness [Recovered/Resolved]
